FAERS Safety Report 4662184-X (Version None)
Quarter: 2005Q2

REPORT INFORMATION
  Report Type: 
  Country: None (occurrence: None)
  Receive Date: 20050516
  Receipt Date: 20050509
  Transmission Date: 20051028
  Serious: Yes (Hospitalization, Other)
  Sender: FDA-Public Use
  Company Number: US-BRISTOL-MYERS SQUIBB COMPANY-12966156

PATIENT
  Age: 37 Year
  Sex: Male

DRUGS (10)
  1. STAVUDINE [Suspect]
  2. LAMIVUDINE [Suspect]
  3. LOPINAVIR + RITONAVIR [Suspect]
  4. PENTAMIDINE [Suspect]
  5. CEFTRIAXONE [Suspect]
  6. DOXYCYCLINE [Suspect]
  7. GANCICLOVIR [Suspect]
  8. CLINDAMYCIN HCL [Suspect]
  9. ATOVAQUONE [Suspect]
  10. PYRIMETHAMINE [Suspect]

REACTIONS (4)
  - CYTOMEGALOVIRUS CHORIORETINITIS [None]
  - ERYTHEMA MULTIFORME [None]
  - MYCOBACTERIUM AVIUM COMPLEX INFECTION [None]
  - PNEUMOCYSTIS JIROVECI PNEUMONIA [None]
